FAERS Safety Report 15955958 (Version 1)
Quarter: 2019Q1

REPORT INFORMATION
  Report Type: Spontaneous
  Country: US (occurrence: US)
  Receive Date: 20190212
  Receipt Date: 20190212
  Transmission Date: 20190417
  Serious: Yes (Other)
  Sender: FDA-Public Use
  Company Number: None

PATIENT
  Age: 21 Year
  Sex: Female
  Weight: 43.9 kg

DRUGS (1)
  1. RENFLEXIS [Suspect]
     Active Substance: INFLIXIMAB-ABDA
     Indication: CROHN^S DISEASE
     Dosage: ?          OTHER FREQUENCY:EVERY 8 WEEKS;?
     Route: 042
     Dates: start: 20180501, end: 20190130

REACTIONS (6)
  - Infusion related reaction [None]
  - Throat tightness [None]
  - Product substitution [None]
  - Dyspnoea [None]
  - Lip swelling [None]
  - Eye swelling [None]

NARRATIVE: CASE EVENT DATE: 20190130
